FAERS Safety Report 11761495 (Version 1)
Quarter: 2015Q4

REPORT INFORMATION
  Report Type: Spontaneous
  Country: US (occurrence: US)
  Receive Date: 20151120
  Receipt Date: 20151120
  Transmission Date: 20160304
  Serious: Yes (Hospitalization)
  Sender: FDA-Public Use
  Company Number: US-BAUSCH-BL-2015-027230

PATIENT
  Age: 70 Year
  Sex: Female
  Weight: 85.81 kg

DRUGS (3)
  1. LACTULOSE. [Concomitant]
     Active Substance: LACTULOSE
     Indication: HEPATIC ENCEPHALOPATHY
     Dosage: 15 ML TWICE DAILY AND INCREASED WITH EPISODES
     Route: 048
  2. XIFAXAN [Suspect]
     Active Substance: RIFAXIMIN
     Indication: HEPATIC ENCEPHALOPATHY
     Route: 048
     Dates: start: 2011
  3. XIFAXAN [Suspect]
     Active Substance: RIFAXIMIN
     Dosage: HALF TABLET SIX HOURS AFTER THE FIRST DOSE FOLLOWED BY THE SECOND HALF TABLET 6 HOURS LATER, THEN FO
     Route: 048

REACTIONS (2)
  - Intentional product misuse [Not Recovered/Not Resolved]
  - Unresponsive to stimuli [Not Recovered/Not Resolved]

NARRATIVE: CASE EVENT DATE: 20151112
